FAERS Safety Report 8460624-1 (Version None)
Quarter: 2012Q2

REPORT INFORMATION
  Report Type: 
  Country: None (occurrence: None)
  Receive Date: 20120622
  Receipt Date: 20120611
  Transmission Date: 20120825
  Serious: No
  Sender: FDA-Public Use
  Company Number: US-ASTRAZENECA-2012SE38820

PATIENT
  Sex: Female

DRUGS (2)
  1. NEXIUM [Suspect]
     Indication: GASTRIC ULCER
     Route: 048
     Dates: start: 20120601
  2. PRILOSEC OTC [Suspect]
     Route: 048
     Dates: end: 20120501

REACTIONS (2)
  - HYPOACUSIS [None]
  - OFF LABEL USE [None]
